FAERS Safety Report 14707946 (Version 6)
Quarter: 2019Q3

REPORT INFORMATION
  Report Type: Spontaneous
  Country: US (occurrence: US)
  Receive Date: 20180403
  Receipt Date: 20190731
  Transmission Date: 20191004
  Serious: Yes (Hospitalization)
  Sender: FDA-Public Use
  Company Number: US-PFIZER INC-2018113741

PATIENT
  Age: 35 Year
  Sex: Female
  Weight: 104 kg

DRUGS (5)
  1. LYRICA [Suspect]
     Active Substance: PREGABALIN
     Indication: IDIOPATHIC PARTIAL EPILEPSY
     Dosage: 150 MG, 2X/DAY
     Route: 048
     Dates: start: 20090809
  2. OMFIL [Concomitant]
     Indication: EPILEPSY
     Dosage: 10 MG, 2X/DAY (10MG IN THE MORNING AND 10MG AT NIGHT BY MOUTH)
     Route: 048
     Dates: start: 2007
  3. LYRICA [Suspect]
     Active Substance: PREGABALIN
     Indication: EPILEPSY
  4. TOPAMAX [Concomitant]
     Active Substance: TOPIRAMATE
     Indication: EPILEPSY
     Dosage: 150 MG, 2X/DAY (BEGAN TAKING 9 YRS AGO)
     Route: 048
  5. LYRICA [Suspect]
     Active Substance: PREGABALIN
     Indication: SEIZURE

REACTIONS (4)
  - Fall [Recovered/Resolved]
  - Gait disturbance [Recovered/Resolved]
  - Joint swelling [Unknown]
  - Palpitations [Not Recovered/Not Resolved]
